FAERS Safety Report 7035173-8 (Version None)
Quarter: 2010Q4

REPORT INFORMATION
  Report Type: 
  Country: None (occurrence: None)
  Receive Date: 20101008
  Receipt Date: 20100928
  Transmission Date: 20110411
  Serious: Yes (Other)
  Sender: FDA-Public Use
  Company Number: US-SANOFI-AVENTIS-2010SA059513

PATIENT
  Age: 81 Year
  Sex: Male

DRUGS (7)
  1. LASIX [Suspect]
     Route: 065
  2. MAALOX [Concomitant]
  3. POTASSIUM [Concomitant]
  4. LANOXIN [Concomitant]
  5. ENALAPRIL MALEATE [Concomitant]
  6. ROSUVASTATIN [Concomitant]
  7. COUMADIN [Concomitant]

REACTIONS (8)
  - APPETITE DISORDER [None]
  - BLADDER DILATATION [None]
  - BUNDLE BRANCH BLOCK LEFT [None]
  - CARDIAC DISORDER [None]
  - CONSTIPATION [None]
  - GASTROINTESTINAL DISORDER [None]
  - NEUROPATHY PERIPHERAL [None]
  - WEIGHT DECREASED [None]
